FAERS Safety Report 4291901-6 (Version None)
Quarter: 2004Q1

REPORT INFORMATION
  Report Type: 
  Country: None (occurrence: None)
  Receive Date: 20040210
  Receipt Date: 20040210
  Transmission Date: 20041129
  Serious: Yes (Hospitalization)
  Sender: FDA-Public Use
  Company Number: None

PATIENT
  Age: 77 Year
  Sex: Male
  Weight: 59 kg

DRUGS (12)
  1. TEQUIN [Suspect]
     Indication: URINARY TRACT INFECTION
     Dosage: 400 MG QD ORAL
     Route: 048
     Dates: start: 20031208, end: 20031217
  2. APAP TAB [Concomitant]
  3. DIGOXIN [Concomitant]
  4. FLUOXETINE [Concomitant]
  5. GLIPIZIDE [Concomitant]
  6. IMATINIB [Concomitant]
  7. INSULIN R SS [Concomitant]
  8. LACTULOSE [Concomitant]
  9. OMEPRAZOLE [Concomitant]
  10. SIMVASTATIN NS [Concomitant]
  11. TAMSULOSIN [Concomitant]
  12. TEMAZEPAM [Concomitant]

REACTIONS (1)
  - HYPOGLYCAEMIA [None]
